FAERS Safety Report 11859915 (Version 1)
Quarter: 2015Q4

REPORT INFORMATION
  Report Type: Spontaneous
  Country: US (occurrence: US)
  Receive Date: 20151222
  Receipt Date: 20151222
  Transmission Date: 20160305
  Serious: No
  Sender: FDA-Public Use
  Company Number: US-PFIZER INC-2015429936

PATIENT
  Age: 28 Year
  Sex: Female
  Weight: 52 kg

DRUGS (6)
  1. MULTIVITAMIN /00097801/ [Concomitant]
     Active Substance: VITAMINS
  2. LYRICA [Suspect]
     Active Substance: PREGABALIN
     Dosage: 150 MG, 3X/DAY
     Route: 048
     Dates: start: 20150526, end: 201510
  3. LYRICA [Suspect]
     Active Substance: PREGABALIN
     Dosage: 300 MG, 3X/DAY
     Route: 048
     Dates: start: 20151201
  4. LYRICA [Suspect]
     Active Substance: PREGABALIN
     Dosage: 750 MG, DAILY, 150MG TWO IN THE MORNING, ONE IN THE AFTERNOON, AND TWO AT NIGHT
     Route: 048
     Dates: start: 201510
  5. IBUPROFEN. [Concomitant]
     Active Substance: IBUPROFEN
  6. LYRICA [Suspect]
     Active Substance: PREGABALIN
     Indication: MIGRAINE
     Dosage: 100 MG, 3X/DAY
     Route: 048
     Dates: start: 20150420, end: 20150525

REACTIONS (2)
  - Drug ineffective for unapproved indication [Not Recovered/Not Resolved]
  - Prescribed overdose [Unknown]
